FAERS Safety Report 16943327 (Version 1)
Quarter: 2019Q4

REPORT INFORMATION
  Report Type: Other
  Country: MT (occurrence: MT)
  Receive Date: 20191022
  Receipt Date: 20191022
  Transmission Date: 20200122
  Serious: Yes (Hospitalization, Other)
  Sender: FDA-Public Use
  Company Number: MT-DEXPHARM-20190886

PATIENT
  Age: 80 Year
  Sex: Female

DRUGS (6)
  1. WARFARIN [Concomitant]
     Active Substance: WARFARIN
  2. AMOXICILLIN. [Concomitant]
     Active Substance: AMOXICILLIN
     Indication: HELICOBACTER INFECTION
  3. OMEPRAZOLE. [Suspect]
     Active Substance: OMEPRAZOLE
     Indication: HELICOBACTER INFECTION
     Dosage: DAILY DOSE: 40 MG MILLGRAM(S) EVERY DAYS
  4. OMEPRAZOLE. [Suspect]
     Active Substance: OMEPRAZOLE
     Indication: PRODUCT USED FOR UNKNOWN INDICATION
     Dosage: DAILY DOSE: 20 MG MILLGRAM(S) EVERY DAYS
  5. DIGOXIN. [Interacting]
     Active Substance: DIGOXIN
     Indication: HEART RATE
     Dosage: DAILY DOSE: 0.125 MG MILLGRAM(S) EVERY DAYS
  6. CLARITHROMYCIN. [Interacting]
     Active Substance: CLARITHROMYCIN
     Indication: HELICOBACTER INFECTION
     Dosage: DAILY DOSE: 1000 MG MILLGRAM(S) EVERY DAYS

REACTIONS (1)
  - Drug interaction [Recovering/Resolving]
